FAERS Safety Report 16418464 (Version 1)
Quarter: 2019Q2

REPORT INFORMATION
  Report Type: Report from Study
  Country: None (occurrence: IT)
  Receive Date: 20190612
  Receipt Date: 20190612
  Transmission Date: 20190711
  Serious: Yes (Hospitalization, Other)
  Sender: FDA-Public Use
  Company Number: IT-ABBVIE-19S-083-2816867-00

PATIENT
  Age: 78 Year
  Sex: Male

DRUGS (1)
  1. DUODOPA [Suspect]
     Active Substance: CARBIDOPA\LEVODOPA
     Indication: PARKINSON^S DISEASE
     Dosage: MD: 2,3+3 CR: 2,4 ED: 2
     Route: 050
     Dates: start: 20170626

REACTIONS (3)
  - Cardiac failure [Unknown]
  - Pleural effusion [Unknown]
  - Hypotension [Unknown]

NARRATIVE: CASE EVENT DATE: 201903
